FAERS Safety Report 4801506-3 (Version None)
Quarter: 2005Q4

REPORT INFORMATION
  Report Type: 
  Country: None (occurrence: None)
  Receive Date: 20051011
  Receipt Date: 20051003
  Transmission Date: 20060501
  Serious: Yes (Hospitalization, Other)
  Sender: FDA-Public Use
  Company Number: 2005135939

PATIENT
  Age: 49 Year
  Sex: Female
  Weight: 81.1939 kg

DRUGS (8)
  1. XANAX [Suspect]
     Indication: TOBACCO ABUSE
     Dosage: 1 MG
     Dates: start: 20030201
  2. REMICADE [Suspect]
     Indication: RHEUMATOID ARTHRITIS
     Dosage: INTRAVENOUS
     Route: 042
     Dates: start: 20050501
  3. LORTAB [Suspect]
     Indication: PAIN
     Dosage: 10 MG
     Dates: start: 20040501
  4. LEXAPRO [Concomitant]
  5. ARAVA [Concomitant]
  6. CRESTOR [Concomitant]
  7. PROTONIX [Concomitant]
  8. SYNTHROID [Concomitant]

REACTIONS (17)
  - ABNORMAL BEHAVIOUR [None]
  - BALANCE DISORDER [None]
  - BLOOD TRIGLYCERIDES INCREASED [None]
  - DELUSION [None]
  - DRUG WITHDRAWAL SYNDROME [None]
  - DYSARTHRIA [None]
  - ELECTROCARDIOGRAM T WAVE ABNORMAL [None]
  - FATIGUE [None]
  - FEELING ABNORMAL [None]
  - HALLUCINATION, VISUAL [None]
  - MALAISE [None]
  - MEMORY IMPAIRMENT [None]
  - OEDEMA PERIPHERAL [None]
  - PARAESTHESIA [None]
  - RHEUMATOID ARTHRITIS [None]
  - SLEEP DISORDER [None]
  - WEIGHT INCREASED [None]
